FAERS Safety Report 7754549-4 (Version None)
Quarter: 2011Q3

REPORT INFORMATION
  Report Type: 
  Country: None (occurrence: None)
  Receive Date: 20110915
  Receipt Date: 20110907
  Transmission Date: 20111222
  Serious: Yes (Hospitalization, Other)
  Sender: FDA-Public Use
  Company Number: US-ABBOTT-11P-163-0719666-00

PATIENT
  Sex: Male
  Weight: 69.008 kg

DRUGS (12)
  1. METOPROLOL TARTRATE [Concomitant]
     Indication: PROPHYLAXIS
  2. HUMIRA [Suspect]
     Indication: CROHN'S DISEASE
     Dates: start: 20090101, end: 20110301
  3. SIMVASTATIN [Concomitant]
     Indication: CARDIAC DISORDER
  4. ASPIRIN [Concomitant]
     Indication: CARDIAC DISORDER
  5. ALBUTEROL [Concomitant]
     Indication: ASTHMA
  6. HUMIRA [Suspect]
  7. METOPROLOL TARTRATE [Concomitant]
     Indication: CARDIAC DISORDER
  8. ASPIRIN [Concomitant]
     Indication: PROPHYLAXIS
  9. PULMICORT [Concomitant]
     Indication: ASTHMA
  10. AMITRIPTYLINE HCL [Concomitant]
     Indication: PRODUCT USED FOR UNKNOWN INDICATION
  11. HUMIRA [Suspect]
     Dates: start: 20110301
  12. SIMVASTATIN [Concomitant]
     Indication: PROPHYLAXIS

REACTIONS (13)
  - MYOCARDIAL INFARCTION [None]
  - SCAB [None]
  - DYSPNOEA [None]
  - ASTHMA [None]
  - CORONARY ARTERY OCCLUSION [None]
  - INCREASED TENDENCY TO BRUISE [None]
  - ABDOMINAL PAIN [None]
  - CROHN'S DISEASE [None]
  - EPISTAXIS [None]
  - DRUG INEFFECTIVE [None]
  - INJECTION SITE HAEMATOMA [None]
  - TINEA PEDIS [None]
  - EAR INJURY [None]
